FAERS Safety Report 8805786 (Version 1)
Quarter: 2012Q4

REPORT INFORMATION
  Report Type: Report from Study
  Country: US (occurrence: US)
  Receive Date: 20120924
  Receipt Date: 20120924
  Transmission Date: 20130627
  Serious: Yes (Hospitalization)
  Sender: FDA-Public Use
  Company Number: US-ABBOTT-12P-163-0976059-00

PATIENT
  Age: 18 None
  Sex: Female

DRUGS (8)
  1. HUMIRA [Suspect]
     Indication: JUVENILE ARTHRITIS
     Dates: start: 200909, end: 200910
  2. HUMIRA [Suspect]
     Dates: start: 201005, end: 201206
  3. HUMIRA [Suspect]
     Dates: start: 20120818
  4. MICROGESTIN [Concomitant]
     Indication: CONTRACEPTION
  5. NAPROXEN [Concomitant]
     Indication: PRODUCT USED FOR UNKNOWN INDICATION
  6. CLARITIN [Concomitant]
     Indication: HYPERSENSITIVITY
     Dosage: Daily
  7. OTHER ANTIDIARRHEALS [Concomitant]
     Indication: PRODUCT USED FOR UNKNOWN INDICATION
     Dosage: Over the counter
  8. MULTIVITAMIN [Concomitant]
     Indication: PRODUCT USED FOR UNKNOWN INDICATION

REACTIONS (18)
  - Tonsillitis [Recovered/Resolved]
  - Oral mucosal discolouration [Unknown]
  - Cyst [Unknown]
  - Influenza like illness [Unknown]
  - Pollakiuria [Not Recovered/Not Resolved]
  - Diarrhoea [Not Recovered/Not Resolved]
  - Lactose intolerance [Unknown]
  - Fatigue [Not Recovered/Not Resolved]
  - Headache [Not Recovered/Not Resolved]
  - Alopecia [Not Recovered/Not Resolved]
  - Tinea infection [Recovered/Resolved]
  - Localised infection [Unknown]
  - Psoriasis [Unknown]
  - Hypoaesthesia [Recovered/Resolved]
  - Tinea infection [Recovered/Resolved]
  - Rash papular [Recovered/Resolved]
  - Erythema [Not Recovered/Not Resolved]
  - Rash papular [Not Recovered/Not Resolved]
